FAERS Safety Report 4316786-0 (Version None)
Quarter: 2004Q1

REPORT INFORMATION
  Report Type: 
  Country: None (occurrence: None)
  Receive Date: 20040311
  Receipt Date: 20040227
  Transmission Date: 20041129
  Serious: Yes (Hospitalization)
  Sender: FDA-Public Use
  Company Number: 230917K04USA

PATIENT
  Age: 42 Year
  Sex: Female

DRUGS (1)
  1. REBIF [Suspect]
     Indication: MULTIPLE SCLEROSIS
     Dates: start: 20031115, end: 20031230

REACTIONS (3)
  - DYSPNOEA [None]
  - MULTIPLE SCLEROSIS [None]
  - QUADRIPLEGIA [None]
